FAERS Safety Report 11835769 (Version 1)
Quarter: 2015Q4

REPORT INFORMATION
  Report Type: Spontaneous
  Country: FR (occurrence: FR)
  Receive Date: 20151215
  Receipt Date: 20151215
  Transmission Date: 20160305
  Serious: Yes (Other)
  Sender: FDA-Public Use
  Company Number: FR-WATSON-2015-27602

PATIENT
  Age: 64 Year
  Sex: Female

DRUGS (3)
  1. PREDNISOLONE. [Concomitant]
     Active Substance: PREDNISOLONE
     Indication: KAPOSI^S SARCOMA
     Dosage: 10 MG, DAILY
     Route: 065
  2. TERBINAFINE (UNKNOWN) [Interacting]
     Active Substance: TERBINAFINE
     Indication: FUNGAL SKIN INFECTION
     Dosage: UNK, BOTH LOCAL AND SYSTEMIC
     Route: 065
  3. CYCLOSPORINE (UNKNOWN) [Suspect]
     Active Substance: CYCLOSPORINE
     Indication: KAPOSI^S SARCOMA
     Dosage: 100 MG, DAILY
     Route: 065

REACTIONS (2)
  - Renal impairment [Unknown]
  - Drug interaction [Unknown]
